FAERS Safety Report 9851911 (Version 4)
Quarter: 2014Q1

REPORT INFORMATION
  Report Type: Spontaneous
  Country: US (occurrence: US)
  Receive Date: 20140129
  Receipt Date: 20140317
  Transmission Date: 20141002
  Serious: Yes (Hospitalization, Disabling)
  Sender: FDA-Public Use
  Company Number: US-JNJFOC-20140116652

PATIENT
  Age: 61 Year
  Sex: Male
  Weight: 117.94 kg

DRUGS (14)
  1. XARELTO [Suspect]
     Indication: CEREBROVASCULAR ACCIDENT PROPHYLAXIS
     Dosage: PM
     Route: 048
     Dates: start: 20131227
  2. XARELTO [Suspect]
     Indication: CEREBROVASCULAR ACCIDENT PROPHYLAXIS
     Dosage: PM
     Route: 048
     Dates: start: 20130828
  3. XARELTO [Suspect]
     Indication: ATRIAL FIBRILLATION
     Dosage: PM
     Route: 048
     Dates: start: 20131227
  4. XARELTO [Suspect]
     Indication: ATRIAL FIBRILLATION
     Dosage: PM
     Route: 048
     Dates: start: 20130828
  5. AMIODARONE [Concomitant]
     Route: 048
  6. TOPROL XL [Concomitant]
     Route: 048
  7. DIGOXIN [Concomitant]
     Route: 048
  8. LOSARTAN [Concomitant]
     Route: 048
  9. LOVASTATIN [Concomitant]
     Route: 048
  10. LASIX [Concomitant]
     Route: 048
  11. CARDIZEM [Concomitant]
     Route: 048
  12. OMEPRAZOLE [Concomitant]
     Route: 048
  13. FISH OIL [Concomitant]
     Route: 065
  14. VITAMINE E [Concomitant]
     Route: 065

REACTIONS (5)
  - Haemorrhage [Recovered/Resolved]
  - International normalised ratio increased [Recovered/Resolved]
  - Eye haemorrhage [Recovering/Resolving]
  - Blindness unilateral [Not Recovered/Not Resolved]
  - Optic nerve injury [Unknown]
